FAERS Safety Report 5429272-1 (Version None)
Quarter: 2007Q3

REPORT INFORMATION
  Report Type: 
  Country: None (occurrence: None)
  Receive Date: 20070827
  Receipt Date: 20070827
  Transmission Date: 20080115
  Serious: No
  Sender: FDA-Public Use
  Company Number: None

PATIENT
  Age: 30 Year
  Sex: Male
  Weight: 104.3273 kg

DRUGS (1)
  1. CEPHALEXIN [Suspect]
     Indication: EAR INFECTION
     Dosage: 500 MG. FOUR TIMES DAILY PO
     Route: 048
     Dates: start: 20070730, end: 20070810

REACTIONS (7)
  - ABDOMINAL PAIN UPPER [None]
  - CONDITION AGGRAVATED [None]
  - DIARRHOEA [None]
  - EAR INFECTION [None]
  - FEELING ABNORMAL [None]
  - IMPAIRED WORK ABILITY [None]
  - PHARYNGOLARYNGEAL PAIN [None]
